FAERS Safety Report 7653935 (Version 3)
Quarter: 2013Q4

REPORT INFORMATION
  Report Type: Spontaneous
  Country: US (occurrence: US)
  Receive Date: 20101102
  Receipt Date: 20131119
  Transmission Date: 20140711
  Serious: Yes (Other)
  Sender: FDA-Public Use
  Company Number: US-BAYER-201019745NA

PATIENT
  Age: 18 Year
  Sex: Female
  Weight: 104.31 kg

DRUGS (11)
  1. YAZ [Suspect]
     Indication: ORAL CONTRACEPTION
     Dosage: UNK
     Route: 048
     Dates: start: 2006, end: 2008
  2. YAZ [Suspect]
     Indication: MENSTRUAL CYCLE MANAGEMENT
  3. YASMIN [Suspect]
     Route: 048
  4. DICYCLOMINE [Concomitant]
  5. PROZAC [Concomitant]
  6. TETRACYCLIN [Concomitant]
  7. PROMETHAZINE [Concomitant]
  8. TRAMADOL [Concomitant]
  9. SERTRALINE [Concomitant]
  10. ZOLOFT [Concomitant]
     Dosage: UNK
     Dates: start: 20081109
  11. ZESTRIL [Concomitant]
     Dosage: UNK
     Dates: start: 20081109

REACTIONS (6)
  - Cholecystitis chronic [None]
  - Gallbladder cholesterolosis [None]
  - Scar [None]
  - Injury [None]
  - Abdominal pain [None]
  - Vomiting [None]
